FAERS Safety Report 8444328 (Version 2)
Quarter: 2012Q4

REPORT INFORMATION
  Report Type: 
  Country: US (occurrence: US)
  Receive Date: 20120307
  Receipt Date: 20121108
  Transmission Date: 20130627
  Serious: No
  Sender: FDA-Public Use
  Company Number: US-B.I. PHARMACEUTICALS,INC./RIDGEFIELD-2012-BP-03358BP

PATIENT
  Sex: Male

DRUGS (6)
  1. PRADAXA [Suspect]
     Indication: ATRIAL FIBRILLATION
     Dosage: 150 mg
     Route: 048
     Dates: start: 201112
  2. PRILOSEC [Concomitant]
     Indication: DYSPEPSIA
     Dosage: 20 mg
     Route: 048
  3. TOPROL [Concomitant]
     Indication: HYPERTENSION
  4. JALYN [Concomitant]
     Indication: RENAL DISORDER
     Route: 048
  5. JALYN [Concomitant]
     Indication: BENIGN PROSTATIC HYPERPLASIA
  6. ZOCOR [Concomitant]
     Indication: BLOOD CHOLESTEROL INCREASED

REACTIONS (3)
  - Tooth infection [Not Recovered/Not Resolved]
  - Erythema [Not Recovered/Not Resolved]
  - Peripheral coldness [Not Recovered/Not Resolved]
